FAERS Safety Report 25371657 (Version 2)
Quarter: 2025Q2

REPORT INFORMATION
  Report Type: Spontaneous
  Country: JP (occurrence: JP)
  Receive Date: 20250529
  Receipt Date: 20250620
  Transmission Date: 20250717
  Serious: Yes (Hospitalization)
  Sender: MERCK SHARP & DOHME LLC
  Company Number: JP-009507513-2289848

PATIENT
  Age: 82 Year
  Sex: Male

DRUGS (1)
  1. PEMBROLIZUMAB [Suspect]
     Active Substance: PEMBROLIZUMAB
     Indication: Gastric cancer
     Route: 041

REACTIONS (3)
  - Cutaneous symptom [Recovered/Resolved]
  - Therapy partial responder [Not Recovered/Not Resolved]
  - Immune-mediated adrenal insufficiency [Not Recovered/Not Resolved]
